FAERS Safety Report 9557682 (Version 2)
Quarter: 2013Q3

REPORT INFORMATION
  Report Type: Report from Study
  Country: CA (occurrence: CA)
  Receive Date: 20130926
  Receipt Date: 20130926
  Transmission Date: 20140515
  Serious: Yes (Hospitalization)
  Sender: FDA-Public Use
  Company Number: CA-ABBVIE-13P-028-1144540-00

PATIENT
  Age: 58 Year
  Sex: Female
  Weight: 68.1 kg

DRUGS (4)
  1. HUMIRA [Suspect]
     Indication: PSORIASIS
     Route: 058
     Dates: start: 20100920, end: 201307
  2. HUMIRA [Suspect]
  3. METHOPRAZINE [Suspect]
     Indication: SLEEP DISORDER THERAPY
     Route: 048
  4. PANTOLOC [Concomitant]
     Indication: DYSPEPSIA
     Route: 048

REACTIONS (4)
  - Osteoarthritis [Recovering/Resolving]
  - Psoriasis [Recovering/Resolving]
  - Psoriasis [Unknown]
  - Psoriatic arthropathy [Unknown]
